FAERS Safety Report 8594466-3 (Version None)
Quarter: 2012Q3

REPORT INFORMATION
  Report Type: 
  Country: None (occurrence: None)
  Receive Date: 20120815
  Receipt Date: 20120807
  Transmission Date: 20120928
  Serious: Yes (Other)
  Sender: FDA-Public Use
  Company Number: US-009507513-2012SP021670

PATIENT

DRUGS (3)
  1. PEG-INTRON [Suspect]
     Indication: HEPATITIS C
     Dosage: UNK UNK, UNKNOWN
     Route: 065
     Dates: start: 20120224
  2. RIBAVIRIN [Suspect]
     Indication: HEPATITIS C
     Dosage: UNK UNK, BID
     Route: 065
     Dates: start: 20120224
  3. RIBAVIRIN [Suspect]
     Dosage: UNK UNK, QD
     Route: 065

REACTIONS (6)
  - DEHYDRATION [None]
  - ANAEMIA [None]
  - WHITE BLOOD CELL COUNT DECREASED [None]
  - BLOOD COUNT ABNORMAL [None]
  - DIZZINESS [None]
  - FOOD CRAVING [None]
